FAERS Safety Report 11993566 (Version 1)
Quarter: 2016Q1

REPORT INFORMATION
  Report Type: Spontaneous
  Country: US (occurrence: US)
  Receive Date: 20160203
  Receipt Date: 20160203
  Transmission Date: 20160526
  Serious: No
  Sender: FDA-Public Use
  Company Number: US-PFIZER INC-2016009821

PATIENT
  Age: 33 Year
  Sex: Male
  Weight: 92.99 kg

DRUGS (1)
  1. ALPRAZOLAM. [Suspect]
     Active Substance: ALPRAZOLAM
     Indication: PANIC ATTACK
     Dosage: 0.5 MG, UNK(BEFORE BEDTIME)
     Dates: start: 201511

REACTIONS (1)
  - Drug ineffective [Unknown]
